FAERS Safety Report 6585831-4 (Version None)
Quarter: 2010Q1

REPORT INFORMATION
  Report Type: 
  Country: None (occurrence: None)
  Receive Date: 20100216
  Receipt Date: 20100216
  Transmission Date: 20100710
  Serious: Yes (Hospitalization)
  Sender: FDA-Public Use
  Company Number: None

PATIENT
  Sex: Male
  Weight: 75.7 kg

DRUGS (3)
  1. TRETINOIN [Suspect]
     Dosage: 2300 MG
  2. CYTARABINE [Suspect]
     Dosage: 2604 MG
  3. DAUNORUBICIN HCL [Concomitant]
     Dosage: 372 MG

REACTIONS (2)
  - RETINAL DETACHMENT [None]
  - RETINOIC ACID SYNDROME [None]
